FAERS Safety Report 20680844 (Version 1)
Quarter: 2022Q2

REPORT INFORMATION
  Report Type: Spontaneous
  Country: CA (occurrence: CA)
  Receive Date: 20220406
  Receipt Date: 20220406
  Transmission Date: 20220721
  Serious: Yes (Death)
  Sender: FDA-Public Use
  Company Number: CA-NOVARTISPH-NVSC2022CA078322

PATIENT

DRUGS (1)
  1. ATRIANCE [Suspect]
     Active Substance: NELARABINE
     Indication: T-cell type acute leukaemia
     Dosage: UNK, CYCLIC
     Route: 065

REACTIONS (1)
  - Death [Fatal]
